FAERS Safety Report 10039352 (Version 4)
Quarter: 2014Q3

REPORT INFORMATION
  Report Type: Spontaneous
  Country: US (occurrence: US)
  Receive Date: 20140326
  Receipt Date: 20140919
  Transmission Date: 20150326
  Serious: No
  Sender: FDA-Public Use
  Company Number: US-009507513-1403USA008465

PATIENT
  Sex: Female
  Weight: 60.77 kg

DRUGS (2)
  1. NEXPLANON [Suspect]
     Active Substance: ETONOGESTREL
     Indication: CONTRACEPTION
     Dosage: UNK
     Route: 059
     Dates: start: 20130309, end: 20140317
  2. LINZESS [Concomitant]
     Active Substance: LINACLOTIDE

REACTIONS (4)
  - Implant site infection [Recovering/Resolving]
  - Implant site cellulitis [Recovering/Resolving]
  - Vaginal haemorrhage [Unknown]
  - Migraine [Recovered/Resolved]

NARRATIVE: CASE EVENT DATE: 201305
